FAERS Safety Report 13499687 (Version 2)
Quarter: 2017Q2

REPORT INFORMATION
  Report Type: Spontaneous
  Country: US (occurrence: US)
  Receive Date: 20170501
  Receipt Date: 20170509
  Transmission Date: 20170830
  Serious: Yes (Other)
  Sender: FDA-Public Use
  Company Number: US-AKORN PHARMACEUTICALS-2017AKN00518

PATIENT
  Age: 17 Year
  Sex: Male
  Weight: 78.46 kg

DRUGS (3)
  1. UNSPECIFIED PROTEIN POWDER [Concomitant]
  2. CREATINE [Concomitant]
     Active Substance: CREATINE
  3. MYORISAN [Suspect]
     Active Substance: ISOTRETINOIN
     Indication: ACNE
     Dosage: 40 MG, 1X/DAY
     Route: 048
     Dates: start: 20170322, end: 20170412

REACTIONS (1)
  - Anxiety [Recovered/Resolved]

NARRATIVE: CASE EVENT DATE: 201704
